FAERS Safety Report 5053582-3 (Version None)
Quarter: 2006Q3

REPORT INFORMATION
  Report Type: 
  Country: None (occurrence: None)
  Receive Date: 20060718
  Receipt Date: 20060710
  Transmission Date: 20061208
  Serious: Yes (Hospitalization)
  Sender: FDA-Public Use
  Company Number: FR-AVENTIS-200612457FR

PATIENT
  Age: 72 Year
  Sex: Male

DRUGS (14)
  1. LOVENOX [Suspect]
     Indication: THROMBOSIS PROPHYLAXIS
     Route: 058
     Dates: start: 20060522, end: 20060606
  2. LOVENOX [Suspect]
     Indication: HIP ARTHROPLASTY
     Route: 058
     Dates: start: 20060522, end: 20060606
  3. ASPIRIN [Suspect]
     Indication: AORTIC ARTERIOSCLEROSIS
     Route: 048
     Dates: end: 20060606
  4. DI-ANTALVIC [Concomitant]
     Dosage: DOSE UNIT: UNITS
     Route: 048
  5. GLUCOPHAGE [Concomitant]
     Indication: DIABETES MELLITUS
     Route: 048
     Dates: end: 20060606
  6. GLUCOPHAGE [Concomitant]
     Route: 048
     Dates: start: 20060608
  7. PRAVASTATIN [Concomitant]
     Indication: HYPERCHOLESTEROLAEMIA
     Route: 048
     Dates: end: 20060606
  8. PRAVASTATIN [Concomitant]
     Route: 048
     Dates: start: 20060607
  9. BISOPROLOL FUMARATE [Concomitant]
     Indication: HYPERTENSION
     Route: 048
     Dates: end: 20060606
  10. COVERSYL [Concomitant]
     Indication: HYPERTENSION
     Route: 048
     Dates: end: 20060606
  11. COVERSYL [Concomitant]
     Route: 048
     Dates: start: 20060609
  12. HUMALOG MIX [Concomitant]
     Indication: DIABETES MELLITUS
     Route: 058
  13. HUMALOG MIX 25 [Concomitant]
     Indication: DIABETES MELLITUS
     Route: 058
  14. MORPHINE SULFATE [Concomitant]
     Route: 048

REACTIONS (5)
  - ANAEMIA [None]
  - DIVERTICULUM INTESTINAL [None]
  - HYPOVOLAEMIA [None]
  - RECTAL HAEMORRHAGE [None]
  - RENAL FAILURE ACUTE [None]
